FAERS Safety Report 6592632-X (Version None)
Quarter: 2010Q1

REPORT INFORMATION
  Report Type: 
  Country: None (occurrence: None)
  Receive Date: 20100222
  Receipt Date: 20100208
  Transmission Date: 20100710
  Serious: Yes (Hospitalization)
  Sender: FDA-Public Use
  Company Number: DE-RANBAXY-2010RR-31003

PATIENT
  Age: 55 Year
  Sex: Female
  Weight: 83 kg

DRUGS (2)
  1. DOXYCYCLINE [Suspect]
     Indication: SINUSITIS
     Dosage: 1 DF, QD
     Dates: start: 20100111, end: 20100117
  2. METAMIZOL 500 [Concomitant]
     Dosage: 1 DF, QD

REACTIONS (7)
  - CONJUNCTIVAL OEDEMA [None]
  - DIPLOPIA [None]
  - EYE PRURITUS [None]
  - EYELID OEDEMA [None]
  - HEADACHE [None]
  - LEUKOCYTOSIS [None]
  - SWELLING FACE [None]
